FAERS Safety Report 15868373 (Version 1)
Quarter: 2019Q1

REPORT INFORMATION
  Report Type: Spontaneous
  Country: CH (occurrence: CH)
  Receive Date: 20190125
  Receipt Date: 20190125
  Transmission Date: 20190417
  Serious: Yes (Other)
  Sender: FDA-Public Use
  Company Number: CH-ABBVIE-19K-151-2624390-00

PATIENT
  Age: 40 Year
  Sex: Male

DRUGS (2)
  1. VENCLYXTO [Suspect]
     Active Substance: VENETOCLAX
     Indication: DIFFUSE LARGE B-CELL LYMPHOMA RECURRENT
  2. VENCLYXTO [Suspect]
     Active Substance: VENETOCLAX
     Indication: DIFFUSE LARGE B-CELL LYMPHOMA REFRACTORY
     Route: 048
     Dates: start: 201810, end: 201812

REACTIONS (3)
  - Diffuse large B-cell lymphoma refractory [Unknown]
  - Diffuse large B-cell lymphoma recurrent [Unknown]
  - Off label use [Unknown]

NARRATIVE: CASE EVENT DATE: 2018
